FAERS Safety Report 20330788 (Version 2)
Quarter: 2022Q1

REPORT INFORMATION
  Report Type: Spontaneous
  Country: IT (occurrence: IT)
  Receive Date: 20220113
  Receipt Date: 20220223
  Transmission Date: 20220423
  Serious: Yes (Hospitalization)
  Sender: FDA-Public Use
  Company Number: IT-MINISAL02-822664

PATIENT
  Age: 15 Year
  Sex: Female
  Weight: 80 kg

DRUGS (5)
  1. AMOXICILLIN\CLAVULANIC ACID [Suspect]
     Active Substance: AMOXICILLIN\CLAVULANIC ACID
     Indication: Drug abuse
     Dosage: 2 DOSAGE FORM, IN TOTAL
     Route: 048
     Dates: start: 20210812, end: 20210812
  2. FINASTERIDE [Suspect]
     Active Substance: FINASTERIDE
     Indication: Drug abuse
     Dosage: 7 DOSAGE FORM, IN TOTAL
     Route: 048
     Dates: start: 20210812, end: 20210812
  3. ETORICOXIB [Suspect]
     Active Substance: ETORICOXIB
     Indication: Drug abuse
     Dosage: 8 DOSAGE FORM, IN TOTAL
     Route: 048
     Dates: start: 20210812, end: 20210812
  4. KETOPROFEN\SUCRALFATE [Suspect]
     Active Substance: KETOPROFEN\SUCRALFATE
     Indication: Drug abuse
     Dosage: 10 DOSAGE FORM, IN TOTAL
     Route: 048
     Dates: start: 20210812, end: 20210812
  5. CLAVULANIC ACID [Suspect]
     Active Substance: CLAVULANIC ACID
     Indication: Drug abuse
     Dosage: 2 DOSAGE FORM, IN TOTAL
     Route: 048
     Dates: start: 20210812, end: 20210812

REACTIONS (3)
  - Abdominal pain upper [Recovered/Resolved]
  - Drug abuse [Recovered/Resolved]
  - Mood altered [Recovered/Resolved]

NARRATIVE: CASE EVENT DATE: 20210812
